FAERS Safety Report 8561665-6 (Version None)
Quarter: 2012Q3

REPORT INFORMATION
  Report Type: 
  Country: None (occurrence: None)
  Receive Date: 20120802
  Receipt Date: 20120716
  Transmission Date: 20120928
  Serious: No
  Sender: FDA-Public Use
  Company Number: US-ASTRAZENECA-2012SE49646

PATIENT
  Age: 78 Year
  Sex: Female
  Weight: 59 kg

DRUGS (5)
  1. VALIUM [Concomitant]
     Indication: ANXIETY
  2. HYDROCHLORTHIAZIDE [Concomitant]
     Indication: HYPERTENSION
  3. PULMICORT FLEXHALER [Suspect]
     Indication: EMPHYSEMA
     Route: 055
     Dates: start: 20120714
  4. ZESTRIL [Concomitant]
     Indication: HYPERTENSION
  5. PULMICORT FLEXHALER [Suspect]
     Dosage: ONE PUFF EACH MORNING
     Route: 055

REACTIONS (3)
  - OFF LABEL USE [None]
  - INTENTIONAL DRUG MISUSE [None]
  - HEADACHE [None]
